FAERS Safety Report 8214211-0 (Version None)
Quarter: 2012Q1

REPORT INFORMATION
  Report Type: 
  Country: None (occurrence: None)
  Receive Date: 20120316
  Receipt Date: 20120307
  Transmission Date: 20120608
  Serious: Yes (Disabling, Other)
  Sender: FDA-Public Use
  Company Number: US-PFIZER INC-2012062110

PATIENT
  Sex: Female

DRUGS (8)
  1. CALCIUM [Concomitant]
     Dosage: UNK
  2. PERCOCET [Concomitant]
     Dosage: UNK
  3. SEROQUEL [Concomitant]
     Dosage: UNK
  4. MS CONTIN [Concomitant]
     Dosage: UNK
  5. SYNTHROID [Concomitant]
     Dosage: UNK
  6. CYMBALTA [Concomitant]
     Dosage: UNK
  7. CELEBREX [Suspect]
     Dosage: 200 MG, 1X/DAY
  8. FISH OIL [Concomitant]
     Dosage: UNK

REACTIONS (7)
  - ROTATOR CUFF SYNDROME [None]
  - BURSITIS [None]
  - ARTHRITIS [None]
  - FIBROMYALGIA [None]
  - BIPOLAR DISORDER [None]
  - HYPERTENSION [None]
  - ATTENTION DEFICIT/HYPERACTIVITY DISORDER [None]
